FAERS Safety Report 17656320 (Version 2)
Quarter: 2020Q3

REPORT INFORMATION
  Report Type: Spontaneous
  Country: GB (occurrence: GB)
  Receive Date: 20200410
  Receipt Date: 20200929
  Transmission Date: 20201102
  Serious: Yes (Disabling)
  Sender: FDA-Public Use
  Company Number: GB-TEVA-2020-GB-1221506

PATIENT
  Age: 74 Year
  Sex: Male
  Weight: 68 kg

DRUGS (11)
  1. LACTULOSE. [Concomitant]
     Active Substance: LACTULOSE
     Indication: CONSTIPATION
     Dosage: TAKE 10?15ML TWICE A DAY AS REQUIRED FOR CONSTI...
     Dates: start: 20180911
  2. GABAPENTIN. [Suspect]
     Active Substance: GABAPENTIN
     Dosage: 900 MG 1 DAYS
     Dates: start: 20180530
  3. FELODIPINE. [Concomitant]
     Active Substance: FELODIPINE
     Dosage: 1 DOSAGE FORMS 1 DAYS
     Dates: start: 20181023
  4. ACETYLSALICYLIC ACID [Concomitant]
     Active Substance: ASPIRIN
     Dosage: 1 DOSAGE FORMS 1 DAYS
     Dates: start: 20120706
  5. CANDESARTAN. [Concomitant]
     Active Substance: CANDESARTAN
     Indication: HYPERTENSION
     Dosage: 2 DOSAGE FORMS 1 DAYS
     Dates: start: 20170103
  6. LAXIDO [Concomitant]
     Active Substance: POLYETHYLENE GLYCOL 3350\POTASSIUM CHLORIDE\SODIUM BICARBONATE\SODIUM CHLORIDE
     Dosage: ONCE OR TWICE A DAY, 1 DOSAGE FORMS
     Dates: start: 20170127
  7. SIMVASTATIN. [Concomitant]
     Active Substance: SIMVASTATIN
     Dosage: 1 DOSAGE FORMS DAILY; AT NIGHT
     Dates: start: 20191129
  8. ACIDEX [Concomitant]
     Active Substance: CALCIUM CARBONATE\SODIUM ALGINATE\SODIUM BICARBONATE
     Dosage: SPOONFUL, 15 ML 1 DAYS
     Dates: start: 20200114, end: 20200211
  9. CALCIUM CARBONATE. [Concomitant]
     Active Substance: CALCIUM CARBONATE
     Dosage: 2 DOSAGE FORMS 1 DAYS
     Dates: start: 20170405, end: 20200219
  10. COLECALCIFEROL [Concomitant]
     Active Substance: CHOLECALCIFEROL
     Dosage: USE AS DIRECTED
     Dates: start: 20191231
  11. LANSOPRAZOLE. [Concomitant]
     Active Substance: LANSOPRAZOLE
     Dosage: 4 DOSAGE FORMS DAILY; IN MORNING BEFORE BREAKFAST, AND AT NIGHT, UNIT DOSE : 2 DOSAGE FORMS
     Dates: start: 20170103

REACTIONS (1)
  - Hallucination [Recovered/Resolved]
